FAERS Safety Report 10261572 (Version 1)
Quarter: 2014Q2

REPORT INFORMATION
  Report Type: Report from Study
  Country: NZ (occurrence: NZ)
  Receive Date: 20140626
  Receipt Date: 20140626
  Transmission Date: 20141212
  Serious: Yes (Other)
  Sender: FDA-Public Use
  Company Number: PHHY2014NZ078648

PATIENT
  Sex: Female

DRUGS (3)
  1. CLOZARIL [Suspect]
  2. ABILIFY [Concomitant]
     Dosage: 20 MG, UNK
     Route: 048
     Dates: start: 20140430
  3. ABILIFY [Concomitant]
     Dosage: 30 MG, QD

REACTIONS (1)
  - Mental impairment [Unknown]
